FAERS Safety Report 14639357 (Version 2)
Quarter: 2018Q2

REPORT INFORMATION
  Report Type: Spontaneous
  Country: US (occurrence: US)
  Receive Date: 20180315
  Receipt Date: 20180604
  Transmission Date: 20180711
  Serious: No
  Sender: FDA-Public Use
  Company Number: US-BRISTOL-MYERS SQUIBB COMPANY-BMS-2018-024499

PATIENT
  Sex: Female
  Weight: 64.4 kg

DRUGS (1)
  1. WARFARIN SODIUM. [Suspect]
     Active Substance: WARFARIN SODIUM
     Indication: ATRIAL FIBRILLATION
     Route: 065

REACTIONS (6)
  - Hypoaesthesia [Unknown]
  - Dyspepsia [Unknown]
  - Vein disorder [Unknown]
  - Throat irritation [Unknown]
  - Joint swelling [Unknown]
  - Drug ineffective [Unknown]
